FAERS Safety Report 10339378 (Version 1)
Quarter: 2014Q3

REPORT INFORMATION
  Report Type: Spontaneous
  Country: DE (occurrence: DE)
  Receive Date: 20140724
  Receipt Date: 20140724
  Transmission Date: 20150326
  Serious: Yes (Hospitalization, Congenital Anomaly, Other)
  Sender: FDA-Public Use
  Company Number: DE-UCBSA-2014005961

PATIENT
  Age: 0 Year
  Sex: Female
  Weight: 1.9 kg

DRUGS (4)
  1. FEMIBION [Concomitant]
     Active Substance: VITAMINS
     Indication: PROPHYLAXIS OF NEURAL TUBE DEFECT
     Dosage: 0.8 MG, ONCE DAILY (QD)
     Route: 064
     Dates: start: 20130614, end: 2013
  2. FEMIBION [Concomitant]
     Active Substance: VITAMINS
     Dosage: UNK
     Route: 064
     Dates: start: 2013, end: 20131228
  3. KEPPRA [Suspect]
     Active Substance: LEVETIRACETAM
     Indication: JUVENILE MYOCLONIC EPILEPSY
     Dosage: 250 MG, 2X/DAY (BID)
     Route: 064
     Dates: start: 20130516, end: 20131228
  4. RHOPHYLAC [Concomitant]
     Active Substance: HUMAN RHO(D) IMMUNE GLOBULIN
     Indication: PROPHYLAXIS AGAINST RH ISOIMMUNISATION
     Dosage: 300 ?G, ONCE DAILY (QD)
     Route: 064
     Dates: start: 20131209, end: 20131209

REACTIONS (9)
  - Apnoea neonatal [Recovered/Resolved]
  - Pericardial effusion [Not Recovered/Not Resolved]
  - Premature baby [Recovering/Resolving]
  - Foetal exposure during pregnancy [Unknown]
  - Patent ductus arteriosus [Recovered/Resolved]
  - Laryngomalacia [Recovered/Resolved]
  - Low birth weight baby [Unknown]
  - Bradycardia neonatal [Recovered/Resolved]
  - Blood creatine phosphokinase MB increased [Not Recovered/Not Resolved]

NARRATIVE: CASE EVENT DATE: 20130530
